FAERS Safety Report 5090748-0 (Version None)
Quarter: 2006Q3

REPORT INFORMATION
  Report Type: 
  Country: None (occurrence: None)
  Receive Date: 20060823
  Receipt Date: 20060807
  Transmission Date: 20061208
  Serious: Yes (Hospitalization)
  Sender: FDA-Public Use
  Company Number: DSA_28578_2006

PATIENT
  Age: 24 Year
  Sex: Female

DRUGS (2)
  1. TAVOR [Suspect]
     Dates: start: 20060804, end: 20060804
  2. TAXILAN [Suspect]
     Dates: start: 20060804, end: 20060804

REACTIONS (4)
  - FATIGUE [None]
  - MULTIPLE DRUG OVERDOSE INTENTIONAL [None]
  - SUICIDE ATTEMPT [None]
  - VOMITING [None]
